FAERS Safety Report 10449788 (Version 1)
Quarter: 2014Q3

REPORT INFORMATION
  Report Type: Spontaneous
  Country: US (occurrence: US)
  Receive Date: 20140912
  Receipt Date: 20140912
  Transmission Date: 20150326
  Serious: No
  Sender: FDA-Public Use
  Company Number: US-PFIZER INC-2014249021

PATIENT
  Age: 58 Year
  Sex: Female

DRUGS (1)
  1. XALATAN [Suspect]
     Active Substance: LATANOPROST
     Indication: GLAUCOMA
     Dosage: 0.005 %, DAILY
     Dates: start: 201408

REACTIONS (1)
  - Foreign body sensation in eyes [Unknown]

NARRATIVE: CASE EVENT DATE: 201408
